FAERS Safety Report 21437459 (Version 2)
Quarter: 2022Q4

REPORT INFORMATION
  Report Type: Spontaneous
  Country: FR (occurrence: FR)
  Receive Date: 20221011
  Receipt Date: 20221102
  Transmission Date: 20230113
  Serious: Yes (Other)
  Sender: FDA-Public Use
  Company Number: FR-ROCHE-3184249

PATIENT
  Age: 70 Year
  Sex: Male
  Weight: 84 kg

DRUGS (2)
  1. PEMETREXED [Suspect]
     Active Substance: PEMETREXED
     Indication: Neoplasm
     Dosage: UNK,(ON 19/AUG/2022 HE RECEIVED THE MOST RECENT DOSE OF PEMETREXED (500 MG/M2) PRIOR TO AE/SAE)
     Route: 042
     Dates: start: 20220729
  2. CARBOPLATIN [Suspect]
     Active Substance: CARBOPLATIN
     Indication: Neoplasm
     Dosage: UNK,(ON 19/AUG/2022 HE RECEIVED THE MOST RECENT DOSE OF CARBOPLATIN (610 MG) PRIOR TO AE/SAE)
     Route: 042
     Dates: start: 20220729

REACTIONS (1)
  - Neutropenia [Not Recovered/Not Resolved]

NARRATIVE: CASE EVENT DATE: 20220808
